FAERS Safety Report 10052055 (Version 1)
Quarter: 2014Q2

REPORT INFORMATION
  Report Type: Spontaneous
  Country: HU (occurrence: HU)
  Receive Date: 20140402
  Receipt Date: 20140402
  Transmission Date: 20141212
  Serious: Yes (Other)
  Sender: FDA-Public Use
  Company Number: PHHY2014HU037196

PATIENT
  Age: 72 Year
  Sex: Female

DRUGS (2)
  1. MOMETASONE FUROATE SANDOZ [Suspect]
     Indication: RHINITIS ALLERGIC
     Dosage: 100 UG, BID
     Route: 006
     Dates: start: 201402, end: 201402
  2. ANTIHISTAMINES [Concomitant]
     Indication: RHINITIS ALLERGIC

REACTIONS (3)
  - Lip oedema [Recovered/Resolved]
  - Face oedema [Recovered/Resolved]
  - Periorbital oedema [Recovered/Resolved]
